FAERS Safety Report 7530596-2 (Version None)
Quarter: 2011Q2

REPORT INFORMATION
  Report Type: 
  Country: None (occurrence: None)
  Receive Date: 20110607
  Receipt Date: 20110524
  Transmission Date: 20111010
  Serious: No
  Sender: FDA-Public Use
  Company Number: US-B.I. PHARMACEUTICALS,INC./RIDGEFIELD-2011-BP-06680BP

PATIENT
  Age: 83 Year
  Sex: Female

DRUGS (17)
  1. CARVEDILOL [Concomitant]
  2. NORTRIPTYLINE HCL [Concomitant]
     Indication: DEPRESSION
  3. REFRESH EYE [Concomitant]
     Indication: EYE DISORDER
  4. EYE GEL [Concomitant]
     Indication: EYE DISORDER
  5. ALIGN PROBIOTIC [Concomitant]
  6. SIMVASTATIN [Concomitant]
  7. DIOVAN [Concomitant]
  8. SYNTHROID [Concomitant]
  9. MULTIPLE VITAMINS [Concomitant]
  10. PRADAXA [Suspect]
     Dosage: 150 MG
     Route: 048
  11. FUROSEMIDE [Concomitant]
  12. RIPANAROL [Concomitant]
  13. PRESERVISION VITAMIN [Concomitant]
     Indication: EYE DISORDER
  14. PRADAXA [Suspect]
     Indication: ATRIAL FIBRILLATION
     Dosage: 300 MG
     Route: 048
     Dates: start: 20110101
  15. FERROUS SULFATE TAB [Concomitant]
  16. DIGOXIN [Concomitant]
  17. CITRICAL [Concomitant]

REACTIONS (4)
  - DYSPEPSIA [None]
  - INSOMNIA [None]
  - DYSPNOEA [None]
  - DIARRHOEA [None]
